FAERS Safety Report 24863919 (Version 3)
Quarter: 2025Q2

REPORT INFORMATION
  Report Type: Report from Study
  Country: IN (occurrence: IN)
  Receive Date: 20250120
  Receipt Date: 20250424
  Transmission Date: 20250717
  Serious: Yes (Death, Hospitalization)
  Sender: ROCHE
  Company Number: IN-ROCHE-10000165191

PATIENT
  Age: 44 Year
  Sex: Male
  Weight: 55.6 kg

DRUGS (2)
  1. TECENTRIQ [Suspect]
     Active Substance: ATEZOLIZUMAB
     Indication: Lung neoplasm malignant
     Dosage: THERAPY WAS ONGOING.
     Route: 042
     Dates: start: 20240812
  2. TECENTRIQ [Suspect]
     Active Substance: ATEZOLIZUMAB
     Dosage: 8TH CYCLE ?THERAPY WAS ONGOING.
     Route: 042

REACTIONS (14)
  - Blood pressure diastolic increased [Unknown]
  - Haemoptysis [Unknown]
  - Flank pain [Unknown]
  - Asthenia [Unknown]
  - Full blood count abnormal [Unknown]
  - Off label use [Unknown]
  - Abdominal distension [Unknown]
  - Headache [Unknown]
  - Cough [Unknown]
  - Dyspnoea exertional [Unknown]
  - Nausea [Unknown]
  - Vomiting [Recovered/Resolved]
  - Gait disturbance [Unknown]
  - Death [Fatal]
